FAERS Safety Report 9680630 (Version 2)
Quarter: 2013Q4

REPORT INFORMATION
  Report Type: Report from Study
  Country: CA (occurrence: CA)
  Receive Date: 20131111
  Receipt Date: 20131115
  Transmission Date: 20140711
  Serious: Yes (Hospitalization, Other)
  Sender: FDA-Public Use
  Company Number: CA-JNJFOC-20131104141

PATIENT
  Age: 73 Year
  Sex: Male
  Weight: 110 kg

DRUGS (12)
  1. REMICADE [Suspect]
     Indication: RHEUMATOID ARTHRITIS
     Route: 042
     Dates: start: 20131107
  2. REMICADE [Suspect]
     Indication: RHEUMATOID ARTHRITIS
     Route: 042
     Dates: start: 20130912
  3. REMICADE [Suspect]
     Indication: RHEUMATOID ARTHRITIS
     Route: 042
     Dates: start: 20111117
  4. SULFASALAZINE [Concomitant]
     Route: 048
  5. PANTOPRAZOLE [Concomitant]
     Dosage: EVERY AM
     Route: 048
  6. AMLODIPINE [Concomitant]
     Dosage: EVERY AM
     Route: 048
  7. ROSUVASTATIN [Concomitant]
     Dosage: EVERY AM
     Route: 048
  8. FUROSEMIDE [Concomitant]
     Dosage: EVERY AM
     Route: 048
  9. RAMIPRIL [Concomitant]
     Route: 048
  10. ENDOCET [Concomitant]
     Dosage: 1 TABLET
     Route: 065
  11. NOVASEN [Concomitant]
     Route: 048
  12. DOCUSATE SODIUM [Concomitant]
     Dosage: 1 TABLET
     Route: 065

REACTIONS (7)
  - Osteoarthritis [Recovering/Resolving]
  - Muscle spasms [Recovering/Resolving]
  - Cyanosis [Recovering/Resolving]
  - Hypertension [Recovering/Resolving]
  - Tachycardia [Recovering/Resolving]
  - Infusion related reaction [Recovering/Resolving]
  - Feeling cold [Recovering/Resolving]
